FAERS Safety Report 17314899 (Version 1)
Quarter: 2020Q1

REPORT INFORMATION
  Report Type: Spontaneous
  Country: US (occurrence: US)
  Receive Date: 20200124
  Receipt Date: 20200124
  Transmission Date: 20200409
  Serious: No
  Sender: FDA-Public Use
  Company Number: US-PCCINC-2019-PEL-000232

PATIENT

DRUGS (44)
  1. GABLOFEN [Suspect]
     Active Substance: BACLOFEN
     Dosage: UNK
  2. BACLOFEN. [Concomitant]
     Active Substance: BACLOFEN
     Dosage: 30 MILLIGRAM
     Route: 048
  3. HYDROCODONE [Concomitant]
     Active Substance: HYDROCODONE
     Indication: PRODUCT USED FOR UNKNOWN INDICATION
     Dosage: UNK
     Route: 065
  4. SENNA                              /00142201/ [Concomitant]
     Active Substance: SENNA LEAF
     Indication: CONSTIPATION
     Dosage: 8.6 MILLIGRAM (1 TIME A DAY AS NEEDED)
     Route: 065
  5. CETIRIZINE [Concomitant]
     Active Substance: CETIRIZINE HYDROCHLORIDE
     Indication: PRODUCT USED FOR UNKNOWN INDICATION
     Dosage: 1 MG/ML, QD
     Route: 048
  6. MAGNESIUM HYDROXIDE. [Concomitant]
     Active Substance: MAGNESIUM HYDROXIDE
     Indication: CONSTIPATION
     Dosage: 150 MILLILITER, QD
     Route: 048
  7. GABLOFEN [Suspect]
     Active Substance: BACLOFEN
     Dosage: INCREASED TO 218.1
     Route: 037
  8. LIORESAL [Concomitant]
     Active Substance: BACLOFEN
     Indication: PRODUCT USED FOR UNKNOWN INDICATION
     Dosage: UNK MILLIGRAM, TID; 1 TABLET BY PER G TUBE
     Route: 048
     Dates: start: 20190909
  9. ATROPINE. [Concomitant]
     Active Substance: ATROPINE
     Indication: SALIVARY HYPERSECRETION
     Dosage: 1 TO 2 DROPS 3 TIMES PER DAY AS NEEDED
     Route: 065
     Dates: start: 20190912
  10. BUSPIRONE [Concomitant]
     Active Substance: BUSPIRONE HYDROCHLORIDE
     Indication: PRODUCT USED FOR UNKNOWN INDICATION
     Dosage: 7.5 MILLIGRAM, BID
     Route: 065
  11. CALCIUM CARBONATE. [Concomitant]
     Active Substance: CALCIUM CARBONATE
     Indication: PRODUCT USED FOR UNKNOWN INDICATION
     Dosage: 2.5 MILLILITER, QD
     Route: 048
  12. GABLOFEN [Suspect]
     Active Substance: BACLOFEN
     Dosage: A BOLUS OF 50 CC
     Route: 037
  13. GABLOFEN [Suspect]
     Active Substance: BACLOFEN
     Dosage: FLOW RATE OF ?115?
     Route: 037
  14. GABLOFEN [Suspect]
     Active Substance: BACLOFEN
     Dosage: 50 MICROGRAM BOLUS
     Route: 065
     Dates: start: 20190910
  15. BACLOFEN. [Concomitant]
     Active Substance: BACLOFEN
     Indication: PRODUCT USED FOR UNKNOWN INDICATION
     Dosage: UNK
     Route: 048
  16. BACLOFEN. [Concomitant]
     Active Substance: BACLOFEN
     Dosage: 60 MILLIGRAM
     Route: 048
  17. DIPHENHYDRAMINE. [Concomitant]
     Active Substance: DIPHENHYDRAMINE
     Indication: HYPERSENSITIVITY
     Dosage: 12.5 MG / 5 ML (EVERY 6 HOURS AS NEEDED)
     Route: 065
  18. IBUPROFEN. [Concomitant]
     Active Substance: IBUPROFEN
     Indication: PYREXIA
  19. LIDOCAINE HYDROCHL [Concomitant]
     Indication: PRODUCT USED FOR UNKNOWN INDICATION
     Dosage: ONE PATCH EVERY 24 HOURS
     Route: 061
  20. GABLOFEN [Suspect]
     Active Substance: BACLOFEN
     Dosage: FLOWRATE AT ^LIKE 240^
     Route: 037
  21. DOCUSATE [Concomitant]
     Active Substance: DOCUSATE
     Indication: PRODUCT USED FOR UNKNOWN INDICATION
     Dosage: 50MG/5ML (100 MG TOTAL BY PER G TUBE ONE TIME A DAY)
     Route: 065
     Dates: start: 20190826
  22. IBUPROFEN. [Concomitant]
     Active Substance: IBUPROFEN
     Indication: PAIN
     Dosage: 100 MG/5 ML (800 MG BY PER G TUBE EVERY 8 HOURS AS NEEDED)
     Route: 065
  23. MELATONIN [Concomitant]
     Active Substance: MELATONIN
     Indication: PRODUCT USED FOR UNKNOWN INDICATION
     Dosage: 3 MILLIGRAM, (6 MG BY PER G TUBE AT BEDTIME)
     Route: 065
  24. ONDANSETRON [Concomitant]
     Active Substance: ONDANSETRON
     Indication: VOMITING
  25. POLYETHYLENE GLYCOL [Concomitant]
     Active Substance: POLYETHYLENE GLYCOLS
     Indication: CONSTIPATION
     Dosage: 17 GRAM POWDER (2 TIMES A DAY AS NEEDED)
     Route: 065
     Dates: start: 20190826
  26. GABLOFEN [Suspect]
     Active Substance: BACLOFEN
     Dosage: 20CC AT 115
     Route: 037
  27. AZELASTINE. [Concomitant]
     Active Substance: AZELASTINE HYDROCHLORIDE
     Dosage: 137 MILLIGRAM (0.1%, 1 SPRAY EVERY 12 HOURS)
     Route: 065
     Dates: start: 20190906
  28. QUETIAPINE. [Concomitant]
     Active Substance: QUETIAPINE
     Indication: AGITATION
  29. TRAZODONE [Concomitant]
     Active Substance: TRAZODONE HYDROCHLORIDE
     Indication: PRODUCT USED FOR UNKNOWN INDICATION
     Dosage: 100 MILLIGRAM, QD
     Route: 048
     Dates: start: 20190912
  30. GABLOFEN [Suspect]
     Active Substance: BACLOFEN
     Indication: MUSCLE SPASTICITY
     Dosage: UNK
     Route: 037
  31. GABLOFEN [Suspect]
     Active Substance: BACLOFEN
     Dosage: A BOLUS OF 50CC
     Route: 065
  32. GABLOFEN [Suspect]
     Active Substance: BACLOFEN
     Dosage: TURNED DOWN TO 100
     Route: 065
  33. GABLOFEN [Suspect]
     Active Substance: BACLOFEN
     Dosage: 50 MICROGRAM BOLUS
     Route: 065
     Dates: start: 20190912
  34. CHLORHEXIDINE [Concomitant]
     Active Substance: CHLORHEXIDINE
     Indication: PRODUCT USED FOR UNKNOWN INDICATION
     Dosage: 15 MILLILITER (AT BEDTIME AS NEEDED)
     Route: 048
  35. DIAZEPAM. [Concomitant]
     Active Substance: DIAZEPAM
     Indication: MUSCLE SPASMS
     Dosage: 5 MILLIGRAM (5ML)
     Route: 065
  36. NEOMYCIN. [Concomitant]
     Active Substance: NEOMYCIN
     Indication: PRODUCT USED FOR UNKNOWN INDICATION
     Dosage: 1 APPLICATION 2 TIMES A DAY AS NEEDED
     Route: 061
  37. SERTRALINE [Concomitant]
     Active Substance: SERTRALINE HYDROCHLORIDE
     Indication: PRODUCT USED FOR UNKNOWN INDICATION
     Dosage: 20 MG/ML (200 MG EVERY MORNING)
     Route: 065
  38. GABLOFEN [Suspect]
     Active Substance: BACLOFEN
     Dosage: TURN UP THE PUMP TO 300
     Route: 065
  39. ACETAMINOPHEN. [Concomitant]
     Active Substance: ACETAMINOPHEN
     Indication: PRODUCT USED FOR UNKNOWN INDICATION
     Dosage: 500 MILLIGRAM, 15 ML LIQUID TO B TAKEN BY PER G TUBE ROUTE EVERY 6 HOURS
     Route: 065
  40. BISACODYL. [Concomitant]
     Active Substance: BISACODYL
     Indication: CONSTIPATION
     Dosage: 10 MILLIGRAM (1 SUPPOSITORY RECTALLY 1 TIME PER DAY AS NEEDED)
     Route: 054
     Dates: start: 20190826
  41. ESOMEPRAZOLE. [Concomitant]
     Active Substance: ESOMEPRAZOLE MAGNESIUM
     Indication: PRODUCT USED FOR UNKNOWN INDICATION
     Dosage: 20 MILLIGRAM, BID
     Route: 048
  42. GLUCOSAMINE W/METHYLSULFONYLMETHANE [Concomitant]
     Indication: PRODUCT USED FOR UNKNOWN INDICATION
     Dosage: 500-500 MG/30 ML LIQUID (BY PER G TUBE), BID
     Route: 065
  43. ONDANSETRON [Concomitant]
     Active Substance: ONDANSETRON
     Indication: NAUSEA
     Dosage: 4 MILLIGRAM (EVERY 6 HOURS AS NEEDED)
     Route: 065
  44. QUETIAPINE. [Concomitant]
     Active Substance: QUETIAPINE
     Indication: SLEEP DISORDER
     Dosage: 100 MILLIGRAM (0.5 TABLETS-50 MG TOTAL 1 TIME PER DAY AS NEEDED)
     Route: 065

REACTIONS (16)
  - Discomfort [Recovered/Resolved]
  - Cold sweat [Recovered/Resolved]
  - Hyperhidrosis [Recovered/Resolved]
  - Withdrawal syndrome [Recovered/Resolved]
  - Muscle spasticity [Recovered/Resolved]
  - Salivary hypersecretion [Recovered/Resolved]
  - Muscle twitching [Recovered/Resolved]
  - Muscle tightness [Recovered/Resolved]
  - Musculoskeletal stiffness [Recovered/Resolved]
  - Insomnia [Recovered/Resolved]
  - Pruritus [Recovered/Resolved]
  - Pain [Recovered/Resolved]
  - Drug ineffective [Recovered/Resolved]
  - Dyspnoea [Recovered/Resolved]
  - Constipation [Recovered/Resolved]
  - Device breakage [Recovered/Resolved]

NARRATIVE: CASE EVENT DATE: 2004
